FAERS Safety Report 7790971-8 (Version None)
Quarter: 2011Q4

REPORT INFORMATION
  Report Type: 
  Country: None (occurrence: None)
  Receive Date: 20111002
  Receipt Date: 20110921
  Transmission Date: 20120403
  Serious: Yes (Other)
  Sender: FDA-Public Use
  Company Number: PHEH2011US04752

PATIENT
  Age: 64 Year
  Sex: Female

DRUGS (4)
  1. MIRAPEX [Concomitant]
     Dosage: UNK UKN, OT
  2. BACLOFEN [Concomitant]
     Dosage: UNK UKN, OT
  3. GILENYA [Suspect]
     Dosage: 0.5 MG, QD
     Route: 048
  4. SOMA [Concomitant]
     Dosage: UNK UKN, OT

REACTIONS (4)
  - BLOOD PRESSURE DECREASED [None]
  - FEELING ABNORMAL [None]
  - DYSPNOEA [None]
  - ASTHENIA [None]
